FAERS Safety Report 5723051-3 (Version None)
Quarter: 2008Q2

REPORT INFORMATION
  Report Type: 
  Country: None (occurrence: None)
  Receive Date: 20080425
  Receipt Date: 20080409
  Transmission Date: 20081010
  Serious: Yes (Hospitalization)
  Sender: FDA-Public Use
  Company Number: 8031767

PATIENT
  Age: 70 Year
  Sex: Female

DRUGS (3)
  1. KEPPRA [Suspect]
     Indication: MYOCLONIC EPILEPSY
     Dosage: 3000 MG /D
  2. CLONAZEPAM [Suspect]
     Indication: MYOCLONIC EPILEPSY
  3. ... [Concomitant]

REACTIONS (1)
  - DRUG EFFECT DECREASED [None]
